FAERS Safety Report 22152904 (Version 1)
Quarter: 2023Q1

REPORT INFORMATION
  Report Type: Spontaneous
  Country: US (occurrence: US)
  Receive Date: 20230329
  Receipt Date: 20230329
  Transmission Date: 20230418
  Serious: No
  Sender: FDA-Public Use
  Company Number: US-BRISTOL-MYERS SQUIBB COMPANY-2023-044957

PATIENT

DRUGS (1)
  1. THALOMID [Suspect]
     Active Substance: THALIDOMIDE
     Indication: Stem cell therapy
     Dosage: 1 CAPSULE ON DAYS 2 THROUGH 5 OF 28 DAY CYCLE
     Route: 048

REACTIONS (1)
  - Off label use [Unknown]
